FAERS Safety Report 9713575 (Version 2)
Quarter: 2014Q1

REPORT INFORMATION
  Report Type: Spontaneous
  Country: US (occurrence: US)
  Receive Date: 20131126
  Receipt Date: 20140130
  Transmission Date: 20141002
  Serious: No
  Sender: FDA-Public Use
  Company Number: US-009507513-1311USA009692

PATIENT
  Age: 80 Year
  Sex: Male
  Weight: 88.44 kg

DRUGS (1)
  1. CLARITIN [Suspect]
     Indication: ALLERGIC RESPIRATORY SYMPTOM
     Dosage: 10 MG, UNKNOWN
     Route: 048
     Dates: start: 20131120, end: 20131123

REACTIONS (1)
  - Drug effect decreased [Unknown]
